FAERS Safety Report 7256041-2 (Version None)
Quarter: 2011Q1

REPORT INFORMATION
  Report Type: 
  Country: None (occurrence: None)
  Receive Date: 20110129
  Receipt Date: 20100526
  Transmission Date: 20110831
  Serious: No
  Sender: FDA-Public Use
  Company Number: US-ABBOTT-10P-163-0639223-00

PATIENT
  Sex: Female
  Weight: 54.026 kg

DRUGS (9)
  1. METHOTREXATE [Suspect]
     Route: 048
  2. METHOTREXATE [Suspect]
     Route: 048
  3. FOLIC ACID [Concomitant]
     Indication: VITAMIN SUPPLEMENTATION
  4. HUMIRA [Suspect]
     Indication: RHEUMATOID ARTHRITIS
     Route: 058
     Dates: start: 20100401
  5. METHOTREXATE [Suspect]
  6. METHOTREXATE [Suspect]
     Indication: RHEUMATOID ARTHRITIS
     Route: 048
  7. CELEBREX [Concomitant]
     Indication: RHEUMATOID ARTHRITIS
     Route: 048
  8. DEPOT INJECTION [Concomitant]
     Indication: CONTRACEPTION
     Route: 050
  9. METHOTREXATE [Suspect]
     Route: 048

REACTIONS (9)
  - EYE PRURITUS [None]
  - EYE PAIN [None]
  - INJECTION SITE URTICARIA [None]
  - NAUSEA [None]
  - TREMOR [None]
  - INCORRECT DOSE ADMINISTERED [None]
  - INJECTION SITE PAIN [None]
  - WRONG TECHNIQUE IN DRUG USAGE PROCESS [None]
  - INJECTION SITE NODULE [None]
